FAERS Safety Report 16773608 (Version 3)
Quarter: 2019Q3

REPORT INFORMATION
  Report Type: Report from Study
  Country: DE (occurrence: DE)
  Receive Date: 20190904
  Receipt Date: 20190912
  Transmission Date: 20191005
  Serious: Yes (Other)
  Sender: FDA-Public Use
  Company Number: DE-EISAI MEDICAL RESEARCH-EC-2019-061383

PATIENT
  Age: 72 Year
  Sex: Female
  Weight: 68.6 kg

DRUGS (1)
  1. HALAVEN [Suspect]
     Active Substance: ERIBULIN MESYLATE
     Indication: BREAST CANCER METASTATIC
     Route: 042
     Dates: start: 20190517, end: 20190823

REACTIONS (12)
  - Rhinitis [Recovered/Resolved]
  - Metastases to lung [Not Recovered/Not Resolved]
  - Neutropenia [Recovered/Resolved]
  - Skin reaction [Recovered/Resolved]
  - Mucosal inflammation [Unknown]
  - Fatigue [Unknown]
  - Nervous system disorder [Unknown]
  - Cough [Recovered/Resolved]
  - Alopecia [Unknown]
  - Dyspnoea [Unknown]
  - Mucosal inflammation [Unknown]
  - Conjunctivitis [Recovered/Resolved]

NARRATIVE: CASE EVENT DATE: 20190520
